FAERS Safety Report 13713181 (Version 4)
Quarter: 2018Q1

REPORT INFORMATION
  Report Type: Spontaneous
  Country: FR (occurrence: FR)
  Receive Date: 20170704
  Receipt Date: 20180321
  Transmission Date: 20180508
  Serious: Yes (Other)
  Sender: FDA-Public Use
  Company Number: FR-ROCHE-1955565

PATIENT
  Age: 69 Year
  Sex: Male

DRUGS (21)
  1. METHYLPREDNISOLONE. [Suspect]
     Active Substance: METHYLPREDNISOLONE
     Indication: PROPHYLAXIS AGAINST TRANSPLANT REJECTION
     Route: 065
  2. SULFAMETHOXAZOLE/TRIMETHOPRIM [Concomitant]
     Active Substance: SULFAMETHOXAZOLE\TRIMETHOPRIM
     Route: 065
     Dates: end: 2015
  3. ITRACONAZOLE. [Concomitant]
     Active Substance: ITRACONAZOLE
     Route: 065
     Dates: end: 2015
  4. RITUXIMAB. [Suspect]
     Active Substance: RITUXIMAB
     Route: 042
     Dates: start: 2015
  5. PREDNISOLONE. [Suspect]
     Active Substance: PREDNISOLONE
     Indication: PROPHYLAXIS AGAINST TRANSPLANT REJECTION
     Route: 065
  6. TACROLIMUS. [Suspect]
     Active Substance: TACROLIMUS
     Indication: PROPHYLAXIS AGAINST TRANSPLANT REJECTION
     Route: 065
  7. AMOXICILLIN TRIHYDRATE/CLAVULANIC ACID [Concomitant]
     Active Substance: AMOXICILLIN\CLAVULANIC ACID
     Route: 065
     Dates: end: 2015
  8. RITUXIMAB. [Suspect]
     Active Substance: RITUXIMAB
     Indication: POST TRANSPLANT LYMPHOPROLIFERATIVE DISORDER
     Route: 042
     Dates: start: 201202
  9. PREDNISOLONE. [Suspect]
     Active Substance: PREDNISOLONE
     Route: 065
  10. PERINDOPRIL [Concomitant]
     Active Substance: PERINDOPRIL
     Route: 065
  11. MANIDIPINE [Concomitant]
     Active Substance: MANIDIPINE
     Route: 065
     Dates: end: 2015
  12. IMMUNOGLOBULIN IV [Concomitant]
     Active Substance: HUMAN IMMUNOGLOBULIN G
     Dosage: G OVER A PERIOD OF 48 HOURS
     Route: 042
     Dates: end: 20130701
  13. LORATADINE. [Concomitant]
     Active Substance: LORATADINE
     Indication: ALLERGY PROPHYLAXIS
     Route: 065
  14. RANITIDINE. [Concomitant]
     Active Substance: RANITIDINE
     Route: 065
     Dates: end: 2015
  15. INDAPAMIDE. [Concomitant]
     Active Substance: INDAPAMIDE
     Route: 065
     Dates: end: 2015
  16. OFLOXACIN. [Concomitant]
     Active Substance: OFLOXACIN
     Route: 065
     Dates: end: 2015
  17. NEBIVOLOL. [Concomitant]
     Active Substance: NEBIVOLOL
     Route: 065
     Dates: end: 2015
  18. VALGANCICLOVIR. [Concomitant]
     Active Substance: VALGANCICLOVIR
     Route: 065
     Dates: end: 2015
  19. MYCOPHENOLATE MOFETIL. [Suspect]
     Active Substance: MYCOPHENOLATE MOFETIL
     Indication: PROPHYLAXIS AGAINST TRANSPLANT REJECTION
     Route: 065
  20. EVEROLIMUS. [Suspect]
     Active Substance: EVEROLIMUS
     Indication: PROPHYLAXIS AGAINST TRANSPLANT REJECTION
     Route: 065
  21. ANTI-THYMOCYTE GLOBULIN (RABBIT) NOS [Suspect]
     Active Substance: LAPINE T-LYMPHOCYTE IMMUNE GLOBULIN
     Indication: PROPHYLAXIS AGAINST TRANSPLANT REJECTION
     Route: 042

REACTIONS (4)
  - Epstein-Barr virus infection [Unknown]
  - Osteonecrosis of jaw [Unknown]
  - Osteomyelitis [Unknown]
  - Post transplant lymphoproliferative disorder [Recovered/Resolved]

NARRATIVE: CASE EVENT DATE: 201509
